FAERS Safety Report 19150967 (Version 2)
Quarter: 2021Q2

REPORT INFORMATION
  Report Type: Spontaneous
  Country: FR (occurrence: FR)
  Receive Date: 20210419
  Receipt Date: 20210426
  Transmission Date: 20210717
  Serious: Yes (Death, Other)
  Sender: FDA-Public Use
  Company Number: FR-JNJFOC-20210431939

PATIENT
  Age: 85 Year
  Sex: Male
  Weight: 76 kg

DRUGS (8)
  1. BISOCE [Concomitant]
     Active Substance: BISOPROLOL
     Dosage: 2.5 MG
  2. ATENOLOL. [Concomitant]
     Active Substance: ATENOLOL
     Dosage: 50 MG
  3. EUPRESSYL [URAPIDIL] [Concomitant]
     Active Substance: URAPIDIL
     Dosage: 60 MG
  4. AMIODARONE [Concomitant]
     Active Substance: AMIODARONE
     Dosage: 10 MG
  5. JOSIR [Concomitant]
     Active Substance: TAMSULOSIN
     Dosage: 0.4 MG
  6. ZOPICLONE [Concomitant]
     Active Substance: ZOPICLONE
     Dosage: 7.5 MG
  7. CORDARONE [Concomitant]
     Active Substance: AMIODARONE HYDROCHLORIDE
     Dosage: 200 MG
  8. XARELTO [Suspect]
     Active Substance: RIVAROXABAN
     Indication: ARRHYTHMIA
     Dosage: 15 MG, QD
     Route: 048
     Dates: start: 2014

REACTIONS (12)
  - Blood creatinine increased [Not Recovered/Not Resolved]
  - End stage renal disease [Fatal]
  - Aphonia [Unknown]
  - Brain oedema [Unknown]
  - Renal haemorrhage [Not Recovered/Not Resolved]
  - Oral fungal infection [Unknown]
  - Fall [Unknown]
  - Eye haemorrhage [Not Recovered/Not Resolved]
  - Cerebral haemorrhage [Not Recovered/Not Resolved]
  - Blindness unilateral [Not Recovered/Not Resolved]
  - Feeding disorder [Unknown]
  - Generalised oedema [Unknown]

NARRATIVE: CASE EVENT DATE: 2014
